FAERS Safety Report 5241012-8 (Version None)
Quarter: 2007Q1

REPORT INFORMATION
  Report Type: 
  Country: None (occurrence: None)
  Receive Date: 20070219
  Receipt Date: 20070215
  Transmission Date: 20070707
  Serious: Yes (Death)
  Sender: FDA-Public Use
  Company Number: US-ABBOTT-07P-163-0359488-00

PATIENT
  Sex: Male

DRUGS (10)
  1. RITONAVIR SOFT GELATIN CAPSULES [Suspect]
     Indication: HIV INFECTION
     Route: 048
     Dates: start: 20060629
  2. GS-9137 [Concomitant]
     Indication: HIV INFECTION
     Route: 048
     Dates: start: 20060629
  3. TRUVADA [Concomitant]
     Indication: HIV INFECTION
     Dates: start: 20060629
  4. FUZEON [Concomitant]
     Indication: HIV INFECTION
     Dates: start: 20060629
  5. ZIDOVUDINE [Concomitant]
     Indication: HIV INFECTION
     Dates: start: 20060629
  6. OXYCODONE HCL [Concomitant]
     Indication: PAIN
     Dates: start: 20050101
  7. AMLODIPINE BESYLATE [Concomitant]
     Indication: HYPERTENSION
     Dates: start: 20060822
  8. SERTRALINE HYDROCHLORIDE [Concomitant]
     Indication: DEPRESSION
     Dates: start: 20060607
  9. ALPRAZOLAM [Concomitant]
     Indication: ANXIETY
     Dates: start: 20060614
  10. TRIAMCINOLONE ACETONIDE [Concomitant]
     Indication: REITER'S SYNDROME
     Dates: start: 20070108, end: 20070108

REACTIONS (1)
  - DEATH [None]
